FAERS Safety Report 24596325 (Version 1)
Quarter: 2024Q4

REPORT INFORMATION
  Report Type: Spontaneous
  Country: US (occurrence: US)
  Receive Date: 20241110
  Receipt Date: 20241110
  Transmission Date: 20250114
  Serious: No
  Sender: SANOFI AVENTIS
  Company Number: US-SA-2024SA309269

PATIENT
  Age: 73 Year
  Sex: Female

DRUGS (19)
  1. DUPIXENT [Suspect]
     Active Substance: DUPILUMAB
     Indication: Sinus polyp degeneration
     Dosage: 300 MG (FREQUENCY: OTHER)
     Route: 058
     Dates: start: 20191107
  2. AUGMENTIN [Concomitant]
     Active Substance: AMOXICILLIN\CLAVULANATE POTASSIUM
  3. ZANTAC [Concomitant]
     Active Substance: RANITIDINE HYDROCHLORIDE
  4. PREDNISONE [Concomitant]
     Active Substance: PREDNISONE
  5. ENOXAPARIN [Concomitant]
     Active Substance: ENOXAPARIN
  6. VENTOLIN [Concomitant]
     Active Substance: ALBUTEROL SULFATE
  7. POTASSIUM CHLORIDE [Concomitant]
     Active Substance: POTASSIUM CHLORIDE
  8. AMOXICILLIN [Concomitant]
     Active Substance: AMOXICILLIN
  9. CLARITIN-D 12 HOUR [Concomitant]
     Active Substance: LORATADINE\PSEUDOEPHEDRINE SULFATE
  10. ADVIL [Concomitant]
     Active Substance: IBUPROFEN
  11. ATENOLOL [Concomitant]
     Active Substance: ATENOLOL
  12. WIXELA INHUB [Concomitant]
     Active Substance: FLUTICASONE PROPIONATE\SALMETEROL XINAFOATE
  13. FLUCONAZOLE [Concomitant]
     Active Substance: FLUCONAZOLE
  14. DYAZIDE [Concomitant]
     Active Substance: HYDROCHLOROTHIAZIDE\TRIAMTERENE
  15. OMEPRAZOLE [Concomitant]
     Active Substance: OMEPRAZOLE
  16. LORAZEPAM [Concomitant]
     Active Substance: LORAZEPAM
  17. SIMVASTATIN [Concomitant]
     Active Substance: SIMVASTATIN
  18. CHOLECALCIFEROL [Concomitant]
     Active Substance: CHOLECALCIFEROL
  19. AZELASTINE [Concomitant]
     Active Substance: AZELASTINE

REACTIONS (3)
  - COVID-19 [Recovering/Resolving]
  - Sinusitis [Recovering/Resolving]
  - Product use in unapproved indication [Unknown]

NARRATIVE: CASE EVENT DATE: 20191107
